FAERS Safety Report 7407603-0 (Version None)
Quarter: 2011Q2

REPORT INFORMATION
  Report Type: 
  Country: None (occurrence: None)
  Receive Date: 20110406
  Receipt Date: 20110406
  Transmission Date: 20111010
  Serious: Yes (Hospitalization)
  Sender: FDA-Public Use
  Company Number: None

PATIENT
  Age: 88 Year
  Sex: Male
  Weight: 84.6 kg

DRUGS (2)
  1. MINOCYCLINE [Suspect]
     Indication: HAEMOLYTIC ANAEMIA
     Dosage: 100 MG EVERY DAY PO
     Route: 048
     Dates: start: 20100615, end: 20101210
  2. MINOCYCLINE [Suspect]
     Indication: SKIN HYPERPIGMENTATION
     Dosage: 100 MG EVERY DAY PO
     Route: 048
     Dates: start: 20100615, end: 20101210

REACTIONS (2)
  - THROMBOCYTOPENIA [None]
  - SKIN HYPERPIGMENTATION [None]
